FAERS Safety Report 5192605-8 (Version None)
Quarter: 2006Q4

REPORT INFORMATION
  Report Type: 
  Country: None (occurrence: None)
  Receive Date: 20061220
  Receipt Date: 20061204
  Transmission Date: 20070319
  Serious: Yes (Other)
  Sender: FDA-Public Use
  Company Number: PHO-2006-037

PATIENT
  Age: 70 Year
  Sex: Male

DRUGS (2)
  1. PHOTOFRIN [Suspect]
     Indication: BARRETT'S OESOPHAGUS
     Dosage: 2MG/KG 1 ADMINISTRATION
  2. PROTON PUMP [Concomitant]

REACTIONS (1)
  - ATRIAL FIBRILLATION [None]
